FAERS Safety Report 13778575 (Version 7)
Quarter: 2018Q2

REPORT INFORMATION
  Report Type: Spontaneous
  Country: US (occurrence: US)
  Receive Date: 20170721
  Receipt Date: 20180419
  Transmission Date: 20180711
  Serious: Yes (Hospitalization, Other)
  Sender: FDA-Public Use
  Company Number: US-009507513-1707USA008363

PATIENT
  Sex: Female
  Weight: 102.4 kg

DRUGS (12)
  1. ZOFRAN [Concomitant]
     Active Substance: ONDANSETRON HYDROCHLORIDE
     Indication: PRODUCT USED FOR UNKNOWN INDICATION
     Route: 065
  2. ALDACTONE [Concomitant]
     Active Substance: SPIRONOLACTONE
     Indication: PRODUCT USED FOR UNKNOWN INDICATION
     Route: 065
  3. NUVARING [Suspect]
     Active Substance: ETHINYL ESTRADIOL\ETONOGESTREL
     Indication: CONTRACEPTION
     Dosage: 1 DF, UNK
     Route: 067
     Dates: start: 20140623, end: 2014
  4. HYOSCYAMINE. [Concomitant]
     Active Substance: HYOSCYAMINE
     Indication: PRODUCT USED FOR UNKNOWN INDICATION
     Route: 065
  5. TYLENOL [Concomitant]
     Active Substance: ACETAMINOPHEN
     Indication: HEADACHE
     Dosage: 1-2 X PER MONTH
     Route: 065
     Dates: start: 2001
  6. LORTAB [Concomitant]
     Active Substance: ACETAMINOPHEN\HYDROCODONE BITARTRATE
     Indication: PRODUCT USED FOR UNKNOWN INDICATION
     Route: 065
  7. NUVARING [Suspect]
     Active Substance: ETHINYL ESTRADIOL\ETONOGESTREL
     Indication: MENSTRUATION IRREGULAR
     Dosage: 1 DF, QM
     Route: 067
     Dates: start: 20121106
  8. ALBUTEROL. [Concomitant]
     Active Substance: ALBUTEROL
     Indication: ASTHMA
     Dosage: UNK
     Route: 065
     Dates: start: 1988
  9. PHENERGAN [Concomitant]
     Active Substance: PROMETHAZINE HYDROCHLORIDE
     Indication: PRODUCT USED FOR UNKNOWN INDICATION
     Route: 065
  10. METFORMIN [Concomitant]
     Active Substance: METFORMIN HYDROCHLORIDE
     Indication: PRODUCT USED FOR UNKNOWN INDICATION
     Route: 065
  11. PRINIVIL [Concomitant]
     Active Substance: LISINOPRIL
     Indication: HYPERTENSION
     Dosage: UNK
     Route: 065
     Dates: start: 201205
  12. TYLENOL [Concomitant]
     Active Substance: ACETAMINOPHEN
     Indication: BACK PAIN

REACTIONS (50)
  - Abdominal pain upper [Not Recovered/Not Resolved]
  - Melaena [Unknown]
  - Atrioventricular block [Unknown]
  - Abdominal pain lower [Recovered/Resolved]
  - Nausea [Not Recovered/Not Resolved]
  - Maternal exposure before pregnancy [Recovered/Resolved]
  - Anxiety [Unknown]
  - Fear of death [Unknown]
  - Asthenia [Unknown]
  - Adnexal torsion [Unknown]
  - Anticoagulation drug level below therapeutic [Unknown]
  - Abdominal pain lower [Unknown]
  - Cardiac flutter [Unknown]
  - Post-traumatic stress disorder [Unknown]
  - Chest injury [Unknown]
  - Pulmonary embolism [Unknown]
  - Polycystic ovaries [Unknown]
  - Sciatica [Unknown]
  - Abdominal pain [Unknown]
  - Mental disorder [Unknown]
  - Oedema peripheral [Unknown]
  - Nausea [Recovered/Resolved]
  - Gastritis [Unknown]
  - Pain in extremity [Unknown]
  - Abdominal pain lower [Unknown]
  - Gestational hypertension [Unknown]
  - Infection [Unknown]
  - Irritable bowel syndrome [Unknown]
  - Haematemesis [Unknown]
  - Dyspnoea [Unknown]
  - Lung disorder [Unknown]
  - Abortion spontaneous [Unknown]
  - Pulmonary embolism [Recovered/Resolved]
  - Adenotonsillectomy [Unknown]
  - Abscess intestinal [Unknown]
  - Diverticulitis [Unknown]
  - Uterine spasm [Unknown]
  - Lymphocytosis [Unknown]
  - Lung disorder [Unknown]
  - Chest pain [Not Recovered/Not Resolved]
  - Appendicectomy [Unknown]
  - Lumbar radiculopathy [Unknown]
  - Headache [Unknown]
  - Lymphoma [Unknown]
  - Deep vein thrombosis [Unknown]
  - Fatigue [Unknown]
  - Muscle strain [Unknown]
  - Migraine [Recovering/Resolving]
  - Hepatic steatosis [Unknown]
  - Pulmonary granuloma [Unknown]

NARRATIVE: CASE EVENT DATE: 2014
